FAERS Safety Report 5145447-3 (Version None)
Quarter: 2006Q4

REPORT INFORMATION
  Report Type: 
  Country: None (occurrence: None)
  Receive Date: 20061101
  Receipt Date: 20061023
  Transmission Date: 20070319
  Serious: Yes (Death, Life-Threatening, Hospitalization)
  Sender: FDA-Public Use
  Company Number: BEWYE321024OCT06

PATIENT
  Age: 70 Year
  Sex: Female

DRUGS (11)
  1. PIPERACILLIN AND TAZOBACTAM [Suspect]
     Indication: DIARRHOEA
     Dosage: 4 G INTRAVENOUS
     Route: 042
     Dates: start: 20060524, end: 20060613
  2. PIPERACILLIN AND TAZOBACTAM [Suspect]
     Indication: PNEUMONIA STAPHYLOCOCCAL
     Dosage: 4 G INTRAVENOUS
     Route: 042
     Dates: start: 20060524, end: 20060613
  3. PIPERACILLIN AND TAZOBACTAM [Suspect]
     Indication: PYREXIA
     Dosage: 4 G INTRAVENOUS
     Route: 042
     Dates: start: 20060524, end: 20060613
  4. PIPERACILLIN AND TAZOBACTAM [Suspect]
     Indication: DIARRHOEA
     Dosage: 4 G INTRAVENOUS
     Route: 042
     Dates: start: 20060701, end: 20060714
  5. PIPERACILLIN AND TAZOBACTAM [Suspect]
     Indication: PNEUMONIA STAPHYLOCOCCAL
     Dosage: 4 G INTRAVENOUS
     Route: 042
     Dates: start: 20060701, end: 20060714
  6. PIPERACILLIN AND TAZOBACTAM [Suspect]
     Indication: PYREXIA
     Dosage: 4 G INTRAVENOUS
     Route: 042
     Dates: start: 20060701, end: 20060714
  7. PIPERACILLIN AND TAZOBACTAM [Suspect]
     Indication: DIARRHOEA
     Dosage: 4 G INTRAVENOUS
     Route: 042
     Dates: start: 20060717, end: 20060718
  8. PIPERACILLIN AND TAZOBACTAM [Suspect]
     Indication: PNEUMONIA STAPHYLOCOCCAL
     Dosage: 4 G INTRAVENOUS
     Route: 042
     Dates: start: 20060717, end: 20060718
  9. PIPERACILLIN AND TAZOBACTAM [Suspect]
     Indication: PYREXIA
     Dosage: 4 G INTRAVENOUS
     Route: 042
     Dates: start: 20060717, end: 20060718
  10. CYCLOPHOSPHAMIDE [Concomitant]
  11. CORTICOSTEROIDS (CORTICOSTEROIDS) [Concomitant]

REACTIONS (10)
  - AGRANULOCYTOSIS [None]
  - COUGH [None]
  - DIARRHOEA [None]
  - ENCEPHALOPATHY [None]
  - ESCHERICHIA INFECTION [None]
  - FUNGAL INFECTION [None]
  - MYELODYSPLASTIC SYNDROME [None]
  - PARESIS [None]
  - PNEUMONIA [None]
  - PYREXIA [None]
